FAERS Safety Report 18466748 (Version 2)
Quarter: 2021Q1

REPORT INFORMATION
  Report Type: Spontaneous
  Country: US (occurrence: US)
  Receive Date: 20201105
  Receipt Date: 20210106
  Transmission Date: 20210419
  Serious: No
  Sender: FDA-Public Use
  Company Number: US-SA-2020SA310349

PATIENT

DRUGS (1)
  1. DUPIXENT [Suspect]
     Active Substance: DUPILUMAB
     Indication: ASTHMA
     Dosage: 300 MG, QOW
     Route: 058
     Dates: start: 20200213

REACTIONS (4)
  - Dry eye [Unknown]
  - Ocular hyperaemia [Unknown]
  - Rash [Unknown]
  - Skin papilloma [Unknown]

NARRATIVE: CASE EVENT DATE: 2020
